FAERS Safety Report 11467559 (Version 1)
Quarter: 2015Q3

REPORT INFORMATION
  Report Type: Spontaneous
  Country: US (occurrence: US)
  Receive Date: 20150908
  Receipt Date: 20150908
  Transmission Date: 20151125
  Serious: Yes (Death)
  Sender: FDA-Public Use
  Company Number: US-ACTAVIS-2015-18407

PATIENT
  Age: 62 Year
  Sex: Male

DRUGS (3)
  1. CISPLATIN (UNKNOWN) [Suspect]
     Active Substance: CISPLATIN
     Indication: HEPATIC CANCER METASTATIC
     Dosage: UNK
     Route: 013
  2. MITOMYCIN. [Suspect]
     Active Substance: MITOMYCIN
     Indication: HEPATIC CANCER METASTATIC
     Route: 013
  3. DOXORUBICIN HYDROCHLORIDE (ACTAVIS INC) [Suspect]
     Active Substance: DOXORUBICIN HYDROCHLORIDE
     Indication: HEPATIC CANCER METASTATIC
     Dosage: UNK
     Route: 013

REACTIONS (1)
  - Hepatic necrosis [Fatal]
